FAERS Safety Report 16900364 (Version 1)
Quarter: 2019Q4

REPORT INFORMATION
  Report Type: Spontaneous
  Country: US (occurrence: US)
  Receive Date: 20191009
  Receipt Date: 20191009
  Transmission Date: 20200122
  Serious: No
  Sender: FDA-Public Use
  Company Number: US-KALEO, INC.-2018KL000139

PATIENT
  Sex: Female

DRUGS (1)
  1. AUVI-Q [Suspect]
     Active Substance: EPINEPHRINE
     Indication: ANAPHYLACTIC REACTION
     Dates: start: 201808, end: 201808

REACTIONS (5)
  - Feeling abnormal [Recovered/Resolved]
  - Erythema [Unknown]
  - Skin burning sensation [Unknown]
  - Heart rate increased [Recovered/Resolved]
  - Skin injury [Unknown]

NARRATIVE: CASE EVENT DATE: 201808
